FAERS Safety Report 24566762 (Version 1)
Quarter: 2024Q4

REPORT INFORMATION
  Report Type: Spontaneous
  Country: US (occurrence: None)
  Receive Date: 20241030
  Receipt Date: 20241030
  Transmission Date: 20250115
  Serious: Yes (Hospitalization)
  Sender: Public
  Company Number: None

PATIENT
  Sex: Female

DRUGS (2)
  1. HUMIRA [Suspect]
     Active Substance: ADALIMUMAB
     Dosage: OTHER FREQUENCY : EVERY14DAYS;?
     Route: 058
     Dates: start: 202408
  2. ENBREL SURECLICK PF AUTOINJ [Concomitant]

REACTIONS (4)
  - Confusional state [None]
  - Feeling abnormal [None]
  - Haematemesis [None]
  - Intentional dose omission [None]
